FAERS Safety Report 4398549-3 (Version None)
Quarter: 2004Q3

REPORT INFORMATION
  Report Type: 
  Country: None (occurrence: None)
  Receive Date: 20040715
  Receipt Date: 20040617
  Transmission Date: 20050211
  Serious: Yes (Life-Threatening, Hospitalization)
  Sender: FDA-Public Use
  Company Number: DE-GLAXOSMITHKLINE-D0044013A

PATIENT
  Age: 16 Year
  Sex: Male
  Weight: 49.5 kg

DRUGS (2)
  1. LAMICTAL [Suspect]
     Dosage: 162.5MG PER DAY
     Route: 048
     Dates: start: 20040402
  2. VALPROATE SODIUM [Concomitant]
     Route: 048
     Dates: end: 20030101

REACTIONS (7)
  - APLASTIC ANAEMIA [None]
  - BONE MARROW DEPRESSION [None]
  - EPISTAXIS [None]
  - HAEMORRHAGE [None]
  - HEPATITIS [None]
  - LEUKOPENIA [None]
  - THROMBOCYTOPENIA [None]
